FAERS Safety Report 8973626 (Version 2)
Quarter: 2013Q4

REPORT INFORMATION
  Report Type: Spontaneous
  Country: US (occurrence: US)
  Receive Date: 20121218
  Receipt Date: 20131002
  Transmission Date: 20140711
  Serious: Yes (Other)
  Sender: FDA-Public Use
  Company Number: CHPA2012US024933

PATIENT
  Age: 93 Year
  Sex: Male

DRUGS (2)
  1. EXCEDRIN EXTRA STRENGTH [Suspect]
     Indication: PAIN
     Dosage: 1 CAPLET PRACTICALLY EVERY MORNING
     Route: 048
     Dates: end: 2012
  2. BAYER ASPIRIN [Concomitant]
     Indication: PAIN
     Dosage: UNK, UNK
     Route: 048

REACTIONS (4)
  - Cataract [Recovered/Resolved]
  - Drug dependence [Unknown]
  - Underdose [Unknown]
  - Incorrect drug administration duration [Unknown]
